FAERS Safety Report 8418054 (Version 4)
Quarter: 2013Q1

REPORT INFORMATION
  Report Type: Spontaneous
  Country: US (occurrence: US)
  Receive Date: 20120221
  Receipt Date: 20130228
  Transmission Date: 20140127
  Serious: Yes (Death, Hospitalization)
  Sender: FDA-Public Use
  Company Number: US-GENZYME-FABR-1002360

PATIENT
  Sex: Male

DRUGS (8)
  1. FABRAZYME [Suspect]
     Indication: FABRY^S DISEASE
     Dosage: 70 MG, Q2W
     Route: 042
     Dates: start: 20040302, end: 20121019
  2. KEPPRA [Concomitant]
     Indication: CONVULSION
     Dosage: 750 MG, BID
     Route: 065
  3. PROGRAF [Concomitant]
     Indication: PROPHYLAXIS AGAINST TRANSPLANT REJECTION
     Dosage: 1 MG, UNK
     Route: 065
     Dates: start: 2004
  4. PREDNISONE [Concomitant]
     Indication: PROPHYLAXIS AGAINST TRANSPLANT REJECTION
     Dosage: 5 MG, QID
     Route: 065
     Dates: start: 2004
  5. FLEXERIL [Concomitant]
     Indication: PRODUCT USED FOR UNKNOWN INDICATION
     Dosage: 5 MG, TID
     Route: 065
  6. HALDOL [Concomitant]
     Indication: VASCULAR DEMENTIA
     Dosage: 1 MG, UNK
     Route: 065
  7. VICODIN [Concomitant]
     Indication: PAIN
     Dosage: 1 DF, UNK
     Route: 065
  8. IMODIUM [Concomitant]
     Indication: DIARRHOEA
     Dosage: 2 MG, BID
     Route: 065

REACTIONS (5)
  - Hepatic cirrhosis [Fatal]
  - Abdominal pain [Unknown]
  - Hepatic failure [Fatal]
  - Fluid retention [Fatal]
  - Hepatitis C [Fatal]
